FAERS Safety Report 8395764-9 (Version None)
Quarter: 2012Q2

REPORT INFORMATION
  Report Type: 
  Country: None (occurrence: None)
  Receive Date: 20120530
  Receipt Date: 20120525
  Transmission Date: 20120825
  Serious: Yes (Death, Other)
  Sender: FDA-Public Use
  Company Number: US-PFIZER INC-2012127256

PATIENT

DRUGS (1)
  1. ZYVOX [Suspect]
     Dosage: UNK

REACTIONS (3)
  - DEATH [None]
  - SEROTONIN SYNDROME [None]
  - INFECTION [None]
